FAERS Safety Report 14255994 (Version 3)
Quarter: 2018Q1

REPORT INFORMATION
  Report Type: Spontaneous
  Country: US (occurrence: US)
  Receive Date: 20171206
  Receipt Date: 20180126
  Transmission Date: 20180508
  Serious: Yes (Other)
  Sender: FDA-Public Use
  Company Number: US-PFIZER INC-2017514765

PATIENT
  Age: 46 Year
  Sex: Female

DRUGS (3)
  1. HEPARIN SODIUM. [Interacting]
     Active Substance: HEPARIN SODIUM
     Indication: CATHETER MANAGEMENT
  2. PROMETHAZINE HCL [Suspect]
     Active Substance: PROMETHAZINE HYDROCHLORIDE
     Indication: NAUSEA
     Dosage: UNK (SEVERAL TIMES PER DAY)
     Route: 042
  3. HEPARIN SODIUM. [Interacting]
     Active Substance: HEPARIN SODIUM
     Indication: CATHETER MANAGEMENT
     Dosage: UNK, (PREFILLED HEPARIN SYRINGES)
     Route: 042

REACTIONS (5)
  - Pulmonary mass [Recovering/Resolving]
  - Wrong technique in product usage process [Recovered/Resolved]
  - Pulmonary embolism [Recovering/Resolving]
  - Pulmonary hypertension [Recovering/Resolving]
  - Drug interaction [Unknown]
